FAERS Safety Report 9729263 (Version 2)
Quarter: 2014Q1

REPORT INFORMATION
  Report Type: Spontaneous
  Country: US (occurrence: US)
  Receive Date: 20131204
  Receipt Date: 20140205
  Transmission Date: 20141002
  Serious: Yes (Hospitalization)
  Sender: FDA-Public Use
  Company Number: US-BAYER-2013-147372

PATIENT
  Age: 45 Year
  Sex: Female
  Weight: 83.9 kg

DRUGS (8)
  1. YASMIN [Suspect]
  2. PROZAC [Concomitant]
     Dosage: 30 MG, UNK
  3. PROZAC [Concomitant]
  4. TRAZODONE [Concomitant]
     Dosage: 25-50 MG
  5. OXYCODONE [Concomitant]
  6. LEVOTHYROXINE [Concomitant]
  7. METRONIDAZOLE [Concomitant]
  8. CIPROFLOXACIN [Concomitant]

REACTIONS (2)
  - Pulmonary embolism [None]
  - Deep vein thrombosis [None]
